FAERS Safety Report 23764743 (Version 1)
Quarter: 2024Q2

REPORT INFORMATION
  Report Type: Spontaneous
  Country: US (occurrence: US)
  Receive Date: 20240420
  Receipt Date: 20240420
  Transmission Date: 20240716
  Serious: No
  Sender: FDA-Public Use
  Company Number: US-Accord-357284

PATIENT
  Age: 88 Year
  Sex: Male

DRUGS (1)
  1. FINASTERIDE [Suspect]
     Active Substance: FINASTERIDE
     Indication: Prostate infection
     Dosage: STRENGTH: 5MG, ONCE DAILY
     Route: 048

REACTIONS (2)
  - Therapy interrupted [Unknown]
  - Recalled product administered [Unknown]
